FAERS Safety Report 7435471-X (Version None)
Quarter: 2011Q2

REPORT INFORMATION
  Report Type: 
  Country: None (occurrence: None)
  Receive Date: 20110425
  Receipt Date: 20110413
  Transmission Date: 20111010
  Serious: Yes (Other)
  Sender: FDA-Public Use
  Company Number: US-JNJFOC-20110409640

PATIENT
  Sex: Female

DRUGS (1)
  1. LISTERINE ORIGINAL [Suspect]
     Indication: DENTAL DISORDER PROPHYLAXIS
     Dosage: RECOMMENDED AMOUNT
     Route: 048

REACTIONS (1)
  - TOOTH DISORDER [None]
